FAERS Safety Report 9471401 (Version 1)
Quarter: 2013Q3

REPORT INFORMATION
  Report Type: Spontaneous
  Country: IT (occurrence: IT)
  Receive Date: 20130822
  Receipt Date: 20130822
  Transmission Date: 20140515
  Serious: Yes (Hospitalization)
  Sender: FDA-Public Use
  Company Number: IT-BAYER-2013-101568

PATIENT
  Age: 87 Year
  Sex: Female

DRUGS (11)
  1. CARDIOASPIRIN [Suspect]
     Indication: THROMBOSIS PROPHYLAXIS
     Dosage: DAILY DOSE 100 MG
     Route: 048
     Dates: start: 20130101, end: 20130605
  2. CARDIOASPIRIN [Suspect]
     Indication: THROMBOSIS PROPHYLAXIS
     Route: 048
  3. PLAVIX [Suspect]
     Indication: THROMBOSIS PROPHYLAXIS
     Dosage: DAILY DOSE 75 MG
     Route: 048
     Dates: start: 20130101, end: 20130605
  4. PLAVIX [Suspect]
     Indication: THROMBOSIS PROPHYLAXIS
     Route: 048
  5. OXYCONTIN [Suspect]
     Indication: ARTHRALGIA
     Dosage: DAILY DOSE 1 DF
     Route: 048
     Dates: start: 20130501, end: 20130605
  6. LASIX [Concomitant]
     Route: 048
  7. PEPTAZOL [Concomitant]
     Route: 048
  8. TRIATEC [Concomitant]
     Dosage: DAILY DOSE .5 DF
     Route: 048
  9. ZYLORIC [Concomitant]
     Route: 048
  10. SEQUACOR [Concomitant]
     Dosage: DAILY DOSE 5 MG
     Route: 048
  11. KANRENOL [Concomitant]
     Route: 048

REACTIONS (6)
  - Chest pain [Unknown]
  - Eructation [Unknown]
  - Dyspepsia [Unknown]
  - Vomiting [Unknown]
  - Decreased appetite [Unknown]
  - Asthenia [Unknown]
